FAERS Safety Report 4405594-8 (Version None)
Quarter: 2004Q3

REPORT INFORMATION
  Report Type: 
  Country: None (occurrence: None)
  Receive Date: 20040723
  Receipt Date: 20031013
  Transmission Date: 20050211
  Serious: No
  Sender: FDA-Public Use
  Company Number: US-GLAXOSMITHKLINE-A0429971A

PATIENT
  Age: 60 Year
  Sex: Female

DRUGS (5)
  1. AVANDIA [Suspect]
     Dosage: 4MG PER DAY
     Route: 048
     Dates: start: 20031010, end: 20031012
  2. ATENOLOL [Concomitant]
  3. LOTENSIN [Concomitant]
  4. ALBUTEROL [Concomitant]
  5. HYDROCHLOROTHIAZIDE [Concomitant]

REACTIONS (2)
  - BLOOD PRESSURE INCREASED [None]
  - PALPITATIONS [None]
